FAERS Safety Report 23041640 (Version 1)
Quarter: 2023Q4

REPORT INFORMATION
  Report Type: Spontaneous
  Country: GE (occurrence: GE)
  Receive Date: 20231007
  Receipt Date: 20231007
  Transmission Date: 20240110
  Serious: Yes (Other)
  Sender: FDA-Public Use
  Company Number: GE-MACLEODS PHARMACEUTICALS US LTD-MAC2023043697

PATIENT

DRUGS (2)
  1. QUETIAPINE [Suspect]
     Active Substance: QUETIAPINE
     Indication: Hallucination, visual
     Dosage: 50 MILLIGRAM
     Route: 065
     Dates: start: 202206, end: 202208
  2. RISPERIDONE [Suspect]
     Active Substance: RISPERIDONE
     Indication: Hallucination, visual
     Dosage: 2 MILLIGRAM
     Route: 065
     Dates: end: 202208

REACTIONS (4)
  - Tardive dyskinesia [Recovering/Resolving]
  - Withdrawal syndrome [Recovering/Resolving]
  - Hallucination [Recovering/Resolving]
  - Treatment noncompliance [Unknown]
